FAERS Safety Report 10884623 (Version 2)
Quarter: 2015Q1

REPORT INFORMATION
  Report Type: Report from Study
  Country: CA (occurrence: CA)
  Receive Date: 20150304
  Receipt Date: 20150317
  Transmission Date: 20150721
  Serious: Yes (Other)
  Sender: FDA-Public Use
  Company Number: CA-AMGEN-CANSL2015018616

PATIENT
  Age: 89 Year
  Sex: Female

DRUGS (1)
  1. PROLIA [Suspect]
     Active Substance: DENOSUMAB
     Indication: OSTEOPOROSIS
     Dosage: 60 MG/ML, UNK
     Route: 058
     Dates: start: 20131224

REACTIONS (6)
  - Oedematous kidney [Unknown]
  - Renal disorder [Unknown]
  - Mobility decreased [Unknown]
  - Groin pain [Unknown]
  - Cystitis [Unknown]
  - Malaise [Unknown]

NARRATIVE: CASE EVENT DATE: 201411
